FAERS Safety Report 8375305-2 (Version None)
Quarter: 2012Q2

REPORT INFORMATION
  Report Type: 
  Country: None (occurrence: None)
  Receive Date: 20120522
  Receipt Date: 20120508
  Transmission Date: 20120825
  Serious: No
  Sender: FDA-Public Use
  Company Number: US-BIOGENIDEC-2012BI011252

PATIENT
  Sex: Female

DRUGS (1)
  1. TYSABRI [Suspect]
     Indication: MULTIPLE SCLEROSIS
     Route: 042
     Dates: start: 20120328

REACTIONS (32)
  - HEART RATE DECREASED [None]
  - CHROMATURIA [None]
  - BALANCE DISORDER [None]
  - NAUSEA [None]
  - VISUAL IMPAIRMENT [None]
  - MYALGIA [None]
  - HEADACHE [None]
  - SENSORY DISTURBANCE [None]
  - DECREASED APPETITE [None]
  - INSOMNIA [None]
  - PAIN IN EXTREMITY [None]
  - ARTHRALGIA [None]
  - ABDOMINAL PAIN UPPER [None]
  - FATIGUE [None]
  - PAIN [None]
  - HYPOAESTHESIA [None]
  - ASTHENIA [None]
  - HYPOTENSION [None]
  - ADVERSE EVENT [None]
  - VERTIGO [None]
  - PRODUCTIVE COUGH [None]
  - NECK PAIN [None]
  - BACK PAIN [None]
  - DIZZINESS [None]
  - WHITE BLOOD CELL COUNT INCREASED [None]
  - BLINDNESS [None]
  - BLINDNESS TRANSIENT [None]
  - VOMITING [None]
  - CHILLS [None]
  - COLD SWEAT [None]
  - GAIT DISTURBANCE [None]
  - TINNITUS [None]
